FAERS Safety Report 25677559 (Version 1)
Quarter: 2025Q3

REPORT INFORMATION
  Report Type: Report from Study
  Country: IN (occurrence: IN)
  Receive Date: 20250813
  Receipt Date: 20250813
  Transmission Date: 20251021
  Serious: Yes (Death, Hospitalization)
  Sender: ALEXION PHARMACEUTICALS
  Company Number: IN-AstraZeneca-CH-00929236A

PATIENT
  Sex: Male

DRUGS (1)
  1. DURVALUMAB [Suspect]
     Active Substance: DURVALUMAB
     Indication: Biliary neoplasm
     Dosage: 1500 MILLIGRAM, Q3W

REACTIONS (7)
  - Hypotension [Fatal]
  - Internal haemorrhage [Fatal]
  - Pain [Fatal]
  - Aspartate aminotransferase increased [Fatal]
  - Blood albumin decreased [Fatal]
  - Blood bilirubin increased [Fatal]
  - Infection [Fatal]
